FAERS Safety Report 9204664 (Version 3)
Quarter: 2015Q1

REPORT INFORMATION
  Report Type: Spontaneous
  Country: US (occurrence: None)
  Receive Date: 20130329
  Receipt Date: 20150212
  Transmission Date: 20150721
  Serious: No
  Sender: FDA-Public Use
  Company Number: CIO13015647

PATIENT
  Age: 60 Year
  Sex: Female
  Weight: 51.2 kg

DRUGS (8)
  1. EVISTA (RALOXIFENE) [Concomitant]
  2. MAGNESIUM [Concomitant]
     Active Substance: MAGNESIUM
  3. VITAMIN D3 [Concomitant]
     Active Substance: CHOLECALCIFEROL
  4. PROBIOTICS [Concomitant]
     Active Substance: PROBIOTICS NOS
  5. CREST PRO-HEALTH COMPLETE (FRESH MINT) [Suspect]
     Active Substance: SODIUM FLUORIDE
     Indication: PROPHYLAXIS
     Dosage: 2 TSP, EVENING,  INTRAORAL
     Route: 048
     Dates: start: 201205, end: 201205
  6. ZINC [Concomitant]
     Active Substance: ZINC\ZINC CHLORIDE
  7. CALCIUM [Concomitant]
     Active Substance: CALCIUM
  8. FISH OIL [Concomitant]
     Active Substance: FISH OIL

REACTIONS (39)
  - Heart rate increased [None]
  - Xerosis [None]
  - Flushing [None]
  - Disturbance in attention [None]
  - Pain [None]
  - Nasal oedema [None]
  - Dry skin [None]
  - Psychomotor hyperactivity [None]
  - Sensation of foreign body [None]
  - Rhinitis [None]
  - Dyspnoea [None]
  - Rash [None]
  - Chapped lips [None]
  - Tremor [None]
  - Hypersensitivity [None]
  - Ear swelling [None]
  - Insomnia [None]
  - Depressed mood [None]
  - Agitation [None]
  - Dry mouth [None]
  - Glossodynia [None]
  - Social avoidant behaviour [None]
  - Dysaesthesia [None]
  - Nervousness [None]
  - Skin exfoliation [None]
  - Dysphonia [None]
  - Erythema [None]
  - Lip dry [None]
  - Pruritus generalised [None]
  - Presyncope [None]
  - Pruritus [None]
  - Paraesthesia oral [None]
  - Thirst [None]
  - Hyperaesthesia [None]
  - Dermatitis contact [None]
  - Dizziness [None]
  - Skin tightness [None]
  - Actinic keratosis [None]
  - Expired product administered [None]
